FAERS Safety Report 8329354-0 (Version None)
Quarter: 2012Q2

REPORT INFORMATION
  Report Type: 
  Country: None (occurrence: None)
  Receive Date: 20120502
  Receipt Date: 20120423
  Transmission Date: 20120825
  Serious: Yes (Hospitalization, Other)
  Sender: FDA-Public Use
  Company Number: JP-VERTEX PHARMACEUTICALS INC.-AE-2012-002736

PATIENT
  Age: 65 Year
  Sex: Female

DRUGS (9)
  1. REBETOL [Concomitant]
     Indication: HEPATITIS C
     Route: 048
     Dates: start: 20120124, end: 20120130
  2. PEG-INTRON [Concomitant]
     Indication: HEPATITIS C
     Route: 058
     Dates: start: 20120124
  3. TELAVIC (TELAPREVIR) [Suspect]
     Indication: HEPATITIS C
     Route: 048
     Dates: start: 20120124, end: 20120127
  4. TELAVIC (TELAPREVIR) [Suspect]
     Route: 048
     Dates: start: 20120214, end: 20120216
  5. TELAVIC (TELAPREVIR) [Suspect]
     Route: 048
     Dates: start: 20120217, end: 20120416
  6. TELAVIC (TELAPREVIR) [Suspect]
     Route: 048
     Dates: start: 20120128, end: 20120213
  7. REBETOL [Concomitant]
     Route: 048
     Dates: start: 20120131, end: 20120221
  8. REBETOL [Concomitant]
     Route: 048
     Dates: start: 20120417
  9. REBETOL [Concomitant]
     Route: 048
     Dates: start: 20120222, end: 20120416

REACTIONS (5)
  - HYPOPHAGIA [None]
  - ANAEMIA [None]
  - NAUSEA [None]
  - RASH [None]
  - MALAISE [None]
